FAERS Safety Report 7796507-X (Version None)
Quarter: 2011Q4

REPORT INFORMATION
  Report Type: 
  Country: None (occurrence: None)
  Receive Date: 20111005
  Receipt Date: 20111003
  Transmission Date: 20120403
  Serious: No
  Sender: FDA-Public Use
  Company Number: US-PFIZER INC-2011234654

PATIENT
  Sex: Male
  Weight: 81.179 kg

DRUGS (6)
  1. CHANTIX [Suspect]
     Indication: SMOKING CESSATION THERAPY
     Dosage: 0.5 MG, 1X/DAY
     Route: 048
     Dates: start: 20110401
  2. CHANTIX [Suspect]
     Dosage: UNK
     Dates: start: 20110901
  3. CHANTIX [Suspect]
     Dosage: 0.5 MG, 1X/DAY
     Dates: start: 20110924
  4. CHANTIX [Suspect]
     Dosage: UNK
     Route: 048
     Dates: start: 20110401, end: 20110401
  5. CYMBALTA [Concomitant]
     Dosage: UNK
  6. GLIMEPIRIDE [Concomitant]
     Dosage: UNK

REACTIONS (6)
  - INSOMNIA [None]
  - ABNORMAL DREAMS [None]
  - VOMITING [None]
  - ABDOMINAL DISCOMFORT [None]
  - NAUSEA [None]
  - MALAISE [None]
